FAERS Safety Report 5263831-4 (Version None)
Quarter: 2007Q1

REPORT INFORMATION
  Report Type: 
  Country: None (occurrence: None)
  Receive Date: 20070313
  Receipt Date: 20070301
  Transmission Date: 20070707
  Serious: Yes (Hospitalization)
  Sender: FDA-Public Use
  Company Number: NL-GLAXOSMITHKLINE-B0460142A

PATIENT
  Age: 56 Year
  Sex: Male

DRUGS (5)
  1. MALARONE [Suspect]
     Indication: PROPHYLAXIS
     Route: 048
     Dates: start: 20060401, end: 20060501
  2. ATACAND [Concomitant]
     Route: 048
  3. TILDIEM [Concomitant]
     Route: 048
  4. SIMVASTATIN [Concomitant]
     Route: 048
  5. ASCAL [Concomitant]
     Route: 048

REACTIONS (3)
  - LIVER DISORDER [None]
  - PYREXIA [None]
  - SPLEEN DISORDER [None]
